FAERS Safety Report 5619485-8 (Version None)
Quarter: 2008Q1

REPORT INFORMATION
  Report Type: 
  Country: None (occurrence: None)
  Receive Date: 20080114
  Receipt Date: 20070921
  Transmission Date: 20080703
  Serious: Yes (Other)
  Sender: FDA-Public Use
  Company Number: FEI2007-1356

PATIENT
  Age: 42 Year
  Sex: Female
  Weight: 52.6173 kg

DRUGS (5)
  1. PARAGARD T 380A [Suspect]
     Indication: CONTRACEPTION
     Dosage: INTRA-UTERINE ; INTRA-UTERINE
     Route: 015
     Dates: start: 19980401, end: 20070501
  2. PARAGARD T 380A [Suspect]
     Indication: CONTRACEPTION
     Dosage: INTRA-UTERINE ; INTRA-UTERINE
     Route: 015
     Dates: start: 20050101, end: 20070518
  3. PENICILLIN [Suspect]
     Indication: ACTINOMYCOSIS
     Dosage: 4 MILLION UNITS (1 IN 4 HR), INTRAVENOUS
     Route: 042
     Dates: start: 20070501, end: 20070622
  4. ZOMIG (ZOLMITRTIPAN) (UNKNOWN) [Concomitant]
  5. OMEPRAZOLE [Concomitant]

REACTIONS (10)
  - ACTINOMYCOSIS [None]
  - COITAL BLEEDING [None]
  - DIARRHOEA [None]
  - DRUG HYPERSENSITIVITY [None]
  - FATIGUE [None]
  - FUNGAL INFECTION [None]
  - HAEMORRHAGIC OVARIAN CYST [None]
  - ORAL CANDIDIASIS [None]
  - UTERINE LEIOMYOMA [None]
  - WEIGHT DECREASED [None]
